FAERS Safety Report 10195690 (Version 3)
Quarter: 2014Q3

REPORT INFORMATION
  Report Type: Spontaneous
  Country: US (occurrence: US)
  Receive Date: 20140527
  Receipt Date: 20140811
  Transmission Date: 20150326
  Serious: Yes (Hospitalization, Other)
  Sender: FDA-Public Use
  Company Number: US-009507513-1405USA013269

PATIENT
  Age: 71 Year
  Sex: Female
  Weight: 58.96 kg

DRUGS (6)
  1. JANUMET [Suspect]
     Active Substance: METFORMIN HYDROCHLORIDE\SITAGLIPTIN PHOSPHATE
     Indication: DIABETES MELLITUS
     Dosage: 50/500, BID
     Route: 048
     Dates: start: 20110428, end: 20130522
  2. EDARBYCLOR [Concomitant]
     Active Substance: AZILSARTAN KAMEDOXOMIL\CHLORTHALIDONE
     Dosage: DAILY DOSE UNKNOWN
  3. FERROUS SULFATE [Concomitant]
     Active Substance: FERROUS SULFATE\FERROUS SULFATE, DRIED
     Dosage: DAILY DOSE UNKNOWN
  4. CATAPRES [Concomitant]
     Active Substance: CLONIDINE HYDROCHLORIDE
     Dosage: DAILY DOSE UNKNOWN
  5. AMLODIPINE [Concomitant]
     Active Substance: AMLODIPINE BESYLATE
     Dosage: DAILY DOSE UNKNOWN
  6. GLIPIZIDE. [Concomitant]
     Active Substance: GLIPIZIDE
     Dosage: DAILY DOSE UNKNOWN

REACTIONS (5)
  - Pancreatic mass [Recovered/Resolved]
  - Cholecystectomy [Unknown]
  - Cholelithiasis [Unknown]
  - Pancreatitis [Recovered/Resolved]
  - Pancreatic operation [Recovered/Resolved]

NARRATIVE: CASE EVENT DATE: 201304
